FAERS Safety Report 5765877-6 (Version None)
Quarter: 2008Q2

REPORT INFORMATION
  Report Type: 
  Country: None (occurrence: None)
  Receive Date: 20080610
  Receipt Date: 20080610
  Transmission Date: 20081010
  Serious: Yes (Hospitalization)
  Sender: FDA-Public Use
  Company Number: None

PATIENT
  Sex: Male
  Weight: 96.6 kg

DRUGS (2)
  1. CASODEX [Suspect]
     Dosage: 50 MG
  2. ZOLADEX [Suspect]
     Dosage: 10.8 MG

REACTIONS (3)
  - DYSPNOEA [None]
  - PAIN IN EXTREMITY [None]
  - PULMONARY EMBOLISM [None]
